FAERS Safety Report 16117524 (Version 3)
Quarter: 2020Q1

REPORT INFORMATION
  Report Type: Report from Study
  Country: EG (occurrence: EG)
  Receive Date: 20190326
  Receipt Date: 20200117
  Transmission Date: 20200409
  Serious: Yes (Disabling, Other)
  Sender: FDA-Public Use
  Company Number: PHHY2019EG011232

PATIENT
  Age: 63 Year
  Sex: Female

DRUGS (2)
  1. GLIVEC [Suspect]
     Active Substance: IMATINIB MESYLATE
     Indication: CHRONIC MYELOID LEUKAEMIA
     Dosage: 400 MG, QD
     Route: 048
     Dates: start: 20180408
  2. HOSTACORTIN H [Concomitant]
     Indication: RHEUMATOID ARTHRITIS
     Dosage: 1 DF, QD (TAB IN THE EVENING)
     Route: 065

REACTIONS (26)
  - Osteoarthritis [Not Recovered/Not Resolved]
  - Vision blurred [Not Recovered/Not Resolved]
  - Eating disorder [Not Recovered/Not Resolved]
  - Nausea [Not Recovered/Not Resolved]
  - Pain [Recovered/Resolved]
  - Vision blurred [Recovered/Resolved]
  - Dyspepsia [Not Recovered/Not Resolved]
  - Thrombocytopenia [Not Recovered/Not Resolved]
  - Pallor [Recovered/Resolved]
  - Dizziness [Recovered/Resolved]
  - Joint stiffness [Not Recovered/Not Resolved]
  - Fall [Not Recovered/Not Resolved]
  - Bone disorder [Not Recovered/Not Resolved]
  - Hypoaesthesia [Not Recovered/Not Resolved]
  - Anaemia [Not Recovered/Not Resolved]
  - Haemoglobin decreased [Recovered/Resolved]
  - Heart rate increased [Recovered/Resolved]
  - Cytogenetic analysis abnormal [Unknown]
  - Haemoglobin decreased [Not Recovered/Not Resolved]
  - Dyspnoea [Not Recovered/Not Resolved]
  - Vomiting [Not Recovered/Not Resolved]
  - Anxiety [Not Recovered/Not Resolved]
  - Hypoaesthesia [Recovered/Resolved]
  - Mental disorder [Not Recovered/Not Resolved]
  - Gait disturbance [Not Recovered/Not Resolved]
  - Dysphagia [Not Recovered/Not Resolved]

NARRATIVE: CASE EVENT DATE: 2018
